FAERS Safety Report 16288388 (Version 3)
Quarter: 2019Q2

REPORT INFORMATION
  Report Type: Spontaneous
  Country: IL (occurrence: IL)
  Receive Date: 20190508
  Receipt Date: 20190528
  Transmission Date: 20190711
  Serious: Yes (Hospitalization, Other)
  Sender: FDA-Public Use
  Company Number: IL-BAXTER-2019BAX008997

PATIENT
  Age: 2 Day
  Sex: Female

DRUGS (12)
  1. SELENIUM [Suspect]
     Active Substance: SELENIUM
     Indication: PARENTERAL NUTRITION
     Route: 065
     Dates: start: 20190410, end: 20190427
  2. ZINC. [Suspect]
     Active Substance: ZINC
     Indication: PARENTERAL NUTRITION
     Route: 065
     Dates: start: 20190410, end: 20190427
  3. SODIUM CHLORIDE. [Suspect]
     Active Substance: SODIUM CHLORIDE
     Indication: PARENTERAL NUTRITION
     Route: 065
     Dates: start: 20190410, end: 20190427
  4. CHROMIUM [Suspect]
     Active Substance: CHROMIC CHLORIDE\CHROMIUM
     Indication: PARENTERAL NUTRITION
     Route: 065
     Dates: start: 20190410, end: 20190427
  5. GLUCOSE 50% W/V CONCENTRATE FOR SOLUTION FOR INFUSION [Suspect]
     Active Substance: DEXTROSE
     Indication: PARENTERAL NUTRITION
     Dosage: (IMPORTED FROM THE UK)
     Route: 065
     Dates: start: 20190410, end: 20190427
  6. CALCIUM GLUCONATE. [Suspect]
     Active Substance: CALCIUM GLUCONATE
     Indication: PARENTERAL NUTRITION
     Route: 065
     Dates: start: 20190410, end: 20190427
  7. MAGNESIUM SULFATE. [Suspect]
     Active Substance: MAGNESIUM SULFATE
     Indication: PARENTERAL NUTRITION
     Route: 065
     Dates: start: 20190410, end: 20190427
  8. PRIM?NE 10% [Suspect]
     Active Substance: AMINO ACIDS
     Indication: PARENTERAL NUTRITION
     Route: 065
     Dates: start: 20190410, end: 20190427
  9. STERILE WATER FOR INJECTION [Suspect]
     Active Substance: WATER
     Indication: PARENTERAL NUTRITION
     Dosage: (IMPORTED FROM MARION NC, USA)
     Route: 065
     Dates: start: 20190410, end: 20190427
  10. POTASSIUM CHLORIDE. [Suspect]
     Active Substance: POTASSIUM CHLORIDE
     Indication: PARENTERAL NUTRITION
     Route: 065
     Dates: start: 20190410, end: 20190427
  11. SODIUM GLYCEROPHOSPHATE [Suspect]
     Active Substance: SODIUM GLYCEROPHOSPHATE
     Indication: PARENTERAL NUTRITION
     Route: 065
     Dates: start: 20190410, end: 20190427
  12. COPPER [Suspect]
     Active Substance: COPPER
     Indication: PARENTERAL NUTRITION
     Route: 065
     Dates: start: 20190410, end: 20190427

REACTIONS (3)
  - Bacterial sepsis [Unknown]
  - Staphylococcal sepsis [Unknown]
  - Fungal sepsis [Unknown]

NARRATIVE: CASE EVENT DATE: 201904
